FAERS Safety Report 8494271-2 (Version None)
Quarter: 2012Q3

REPORT INFORMATION
  Report Type: 
  Country: None (occurrence: None)
  Receive Date: 20120709
  Receipt Date: 20120706
  Transmission Date: 20120928
  Serious: Yes (Death, Other)
  Sender: FDA-Public Use
  Company Number: PHEH2006US05805

PATIENT
  Sex: Female

DRUGS (1)
  1. ZOMETA [Suspect]
     Route: 042

REACTIONS (25)
  - ATELECTASIS [None]
  - METASTASES TO LUNG [None]
  - BONE DISORDER [None]
  - HYPERGLYCAEMIA [None]
  - ASCITES [None]
  - HAEMATEMESIS [None]
  - SINUS TACHYCARDIA [None]
  - ARRHYTHMIA [None]
  - PERICARDIAL EFFUSION [None]
  - OEDEMA PERIPHERAL [None]
  - DEATH [None]
  - ORAL PAIN [None]
  - PLEURAL EFFUSION [None]
  - MENTAL STATUS CHANGES [None]
  - METASTASES TO LIVER [None]
  - LYMPHADENOPATHY [None]
  - DYSPNOEA [None]
  - ORAL INFECTION [None]
  - ELECTROCARDIOGRAM T WAVE ABNORMAL [None]
  - ANAEMIA [None]
  - SINUSITIS [None]
  - OSTEONECROSIS OF JAW [None]
  - LOOSE TOOTH [None]
  - GINGIVAL DISORDER [None]
  - METASTASES TO HEART [None]
